FAERS Safety Report 9917759 (Version 1)
Quarter: 2014Q1

REPORT INFORMATION
  Report Type: Spontaneous
  Country: US (occurrence: US)
  Receive Date: 20140221
  Receipt Date: 20140221
  Transmission Date: 20141002
  Serious: Yes (Death)
  Sender: FDA-Public Use
  Company Number: US-TMC-CABO-14004014

PATIENT
  Age: 8 Year
  Sex: Female

DRUGS (3)
  1. COMETRIQ [Suspect]
     Indication: RENAL CANCER
     Dosage: 40 MG, QD
     Route: 048
     Dates: start: 20140124, end: 201402
  2. KEPPRA [Concomitant]
  3. FLUCONVA [Concomitant]

REACTIONS (2)
  - Death [Fatal]
  - Off label use [Unknown]
